FAERS Safety Report 8137502-0 (Version None)
Quarter: 2012Q1

REPORT INFORMATION
  Report Type: 
  Country: None (occurrence: None)
  Receive Date: 20120103
  Receipt Date: 20110909
  Transmission Date: 20120608
  Serious: No
  Sender: FDA-Public Use
  Company Number: AE-2011-001440

PATIENT
  Age: 53 Year
  Sex: Female
  Weight: 77.1115 kg

DRUGS (3)
  1. PEG-INTRON [Concomitant]
  2. INCIVEK [Suspect]
     Dosage: 2250 MG (750 MG,3 IN 1 D), ORAL
     Route: 048
     Dates: start: 20110627
  3. RIBAVIRIN [Concomitant]

REACTIONS (3)
  - PRURITUS GENERALISED [None]
  - BALANCE DISORDER [None]
  - MEMORY IMPAIRMENT [None]
